FAERS Safety Report 7986094-5 (Version None)
Quarter: 2011Q4

REPORT INFORMATION
  Report Type: 
  Country: None (occurrence: None)
  Receive Date: 20111216
  Receipt Date: 20110622
  Transmission Date: 20120403
  Serious: No
  Sender: FDA-Public Use
  Company Number: US-BRISTOL-MYERS SQUIBB COMPANY-15850415

PATIENT
  Age: 27 Year
  Sex: Female

DRUGS (3)
  1. ABILIFY [Suspect]
     Dosage: TWO SEPARATE ATTEMPTS
  2. WELLBUTRIN [Concomitant]
  3. SUBOXONE [Concomitant]

REACTIONS (1)
  - PYREXIA [None]
